FAERS Safety Report 4360564-3 (Version None)
Quarter: 2004Q2

REPORT INFORMATION
  Report Type: 
  Country: None (occurrence: None)
  Receive Date: 20040519
  Receipt Date: 20040510
  Transmission Date: 20050107
  Serious: Yes (Disabling)
  Sender: FDA-Public Use
  Company Number: FR-ROCHE-367261

PATIENT
  Age: 49 Year
  Sex: Male

DRUGS (1)
  1. ROFERON-A [Suspect]
     Indication: MALIGNANT MELANOMA
     Route: 058
     Dates: start: 20021115, end: 20031115

REACTIONS (1)
  - HYPOACUSIS [None]
